FAERS Safety Report 17618603 (Version 1)
Quarter: 2020Q2

REPORT INFORMATION
  Report Type: Report from Study
  Country: ES (occurrence: ES)
  Receive Date: 20200402
  Receipt Date: 20200402
  Transmission Date: 20200713
  Serious: Yes (Hospitalization)
  Sender: FDA-Public Use
  Company Number: ES-TEVA-2020-ES-1217234

PATIENT
  Age: 70 Year
  Sex: Male

DRUGS (6)
  1. LORAZEPAM (1864A) [Concomitant]
     Active Substance: LORAZEPAM
     Dosage: 1MG
     Route: 048
     Dates: start: 20150311, end: 20171107
  2. SIMVASTATINA (1023A) [Concomitant]
     Active Substance: SIMVASTATIN
     Indication: DYSLIPIDAEMIA
     Dosage: 20MG
     Route: 048
     Dates: start: 20141129, end: 20171107
  3. VALSARTAN (7423A) [Suspect]
     Active Substance: VALSARTAN
     Indication: HYPERTENSION
     Dosage: 80MG
     Route: 048
     Dates: start: 20141201, end: 20171107
  4. METFORMINA (1359A) [Concomitant]
     Active Substance: METFORMIN HYDROCHLORIDE
     Indication: DIABETES MELLITUS
     Dosage: 1.7G
     Route: 048
     Dates: start: 20141129, end: 20171107
  5. ATROALDO 20 MICROGRAMOS/PULSACION SOLUCION PARA INHALACION EN ENVASE A [Concomitant]
     Dosage: 120MCG
     Route: 055
     Dates: start: 20170314
  6. OMEPRAZOL (2141A) [Concomitant]
     Active Substance: OMEPRAZOLE
     Indication: PROPHYLAXIS
     Dosage: 20MG
     Route: 048
     Dates: start: 20170607, end: 20171107

REACTIONS (1)
  - Acute kidney injury [Recovered/Resolved]

NARRATIVE: CASE EVENT DATE: 201711
